FAERS Safety Report 9120877 (Version 1)
Quarter: 2013Q1

REPORT INFORMATION
  Report Type: Spontaneous
  Country: BR (occurrence: BR)
  Receive Date: 20130226
  Receipt Date: 20130226
  Transmission Date: 20140127
  Serious: Yes (Other)
  Sender: FDA-Public Use
  Company Number: BR-JNJFOC-20130207968

PATIENT
  Age: 13 Year
  Sex: Female

DRUGS (1)
  1. METHYLPHENIDATE HYDROCHLORIDE [Suspect]
     Indication: ATTENTION DEFICIT/HYPERACTIVITY DISORDER
     Route: 048

REACTIONS (4)
  - Hepatotoxicity [Unknown]
  - Myopathy [Recovered/Resolved]
  - Muscle spasms [Recovered/Resolved]
  - Inappropriate schedule of drug administration [Unknown]
